FAERS Safety Report 5825173-5 (Version None)
Quarter: 2008Q3

REPORT INFORMATION
  Report Type: 
  Country: None (occurrence: None)
  Receive Date: 20080723
  Receipt Date: 20080707
  Transmission Date: 20090109
  Serious: Yes (Hospitalization)
  Sender: FDA-Public Use
  Company Number: 8034235

PATIENT
  Age: 62 Year
  Sex: Male
  Weight: 85.97 kg

DRUGS (10)
  1. TUSSIONEX [Suspect]
     Indication: POSTNASAL DRIP
     Dosage: 2/D PO
     Route: 048
     Dates: start: 19980101, end: 20080501
  2. TUSSIONEX [Suspect]
     Indication: POSTNASAL DRIP
     Dosage: 2/D PO
     Route: 048
     Dates: start: 20080601
  3. HYDROMET  /00112601/ [Suspect]
     Indication: POSTNASAL DRIP
  4. METFORMIN HCL [Concomitant]
  5. HYDROCHLOROTHIAZIDE [Concomitant]
  6. LISINOPRIL [Concomitant]
  7. VYTORIN [Concomitant]
  8. DIAZEPAM [Concomitant]
  9. DOXEPIN HCL [Concomitant]
  10. MULTI-VITAMIN [Concomitant]

REACTIONS (6)
  - BENIGN NEOPLASM [None]
  - BLOOD PRESSURE INCREASED [None]
  - FALL [None]
  - HEADACHE [None]
  - LOSS OF CONSCIOUSNESS [None]
  - RENAL FAILURE [None]
